FAERS Safety Report 17337924 (Version 3)
Quarter: 2025Q3

REPORT INFORMATION
  Report Type: Report from Study
  Country: US (occurrence: US)
  Receive Date: 20200129
  Receipt Date: 20250812
  Transmission Date: 20251021
  Serious: No
  Sender: TAKEDA
  Company Number: US-SHIRE-US202003268

PATIENT
  Age: 71 Year
  Sex: Female
  Weight: 65.76 kg

DRUGS (4)
  1. TEDUGLUTIDE [Suspect]
     Active Substance: TEDUGLUTIDE
     Indication: Short-bowel syndrome
     Dosage: UNK UNK, QD
     Dates: start: 20131009
  2. TEDUGLUTIDE [Suspect]
     Active Substance: TEDUGLUTIDE
     Dosage: 0.33 MILLILITER, QD
  3. TEDUGLUTIDE [Suspect]
     Active Substance: TEDUGLUTIDE
     Dosage: UNK UNK, QD
  4. TEDUGLUTIDE [Suspect]
     Active Substance: TEDUGLUTIDE

REACTIONS (5)
  - Injection site mass [Unknown]
  - Weight fluctuation [Unknown]
  - Malaise [Unknown]
  - Pyrexia [Recovering/Resolving]
  - Pain [Recovering/Resolving]

NARRATIVE: CASE EVENT DATE: 20200124
